FAERS Safety Report 11675480 (Version 6)
Quarter: 2018Q3

REPORT INFORMATION
  Report Type: Spontaneous
  Country: US (occurrence: US)
  Receive Date: 20151028
  Receipt Date: 20180910
  Transmission Date: 20181010
  Serious: No
  Sender: FDA-Public Use
  Company Number: US-ACTELION PHARMACEUTICALS US, INC.-A-NJ2015-126238

PATIENT
  Age: 61 Year
  Sex: Female

DRUGS (44)
  1. PHENDIMETRAZINE TARTRATE. [Concomitant]
     Active Substance: PHENDIMETRAZINE TARTRATE
  2. VITAMIN B12 [Concomitant]
     Active Substance: CYANOCOBALAMIN
  3. DICLOFENAC SODIUM. [Concomitant]
     Active Substance: DICLOFENAC SODIUM
     Dosage: 100 MG, UNK
     Dates: start: 20170320
  4. PRAMIPEXOLE DIHYDROCHLORIDE. [Concomitant]
     Active Substance: PRAMIPEXOLE DIHYDROCHLORIDE
     Dosage: 0.125 MG, UNK
     Dates: start: 20170331
  5. KETOCONAZOLE. [Concomitant]
     Active Substance: KETOCONAZOLE
     Dosage: 200 MG, UNK
     Dates: start: 20170331
  6. MORPHINE SULFATE. [Concomitant]
     Active Substance: MORPHINE SULFATE
     Dosage: 15 MG, UNK
     Dates: start: 20170320
  7. OXYCODONE [Concomitant]
     Active Substance: OXYCODONE
  8. TORSEMIDE. [Concomitant]
     Active Substance: TORSEMIDE
     Dosage: 20 MG, UNK
     Dates: start: 20170320
  9. HYDROXYZINE HCL [Concomitant]
     Active Substance: HYDROXYZINE HYDROCHLORIDE
     Dosage: 10 MG, UNK
     Dates: start: 20170320
  10. FUROSEMIDE. [Concomitant]
     Active Substance: FUROSEMIDE
     Dosage: UNK
     Dates: start: 20170320
  11. QSYMIA [Concomitant]
     Active Substance: PHENTERMINE HYDROCHLORIDE\TOPIRAMATE
  12. KETOPROFEN. [Concomitant]
     Active Substance: KETOPROFEN
     Dosage: 50 MG, UNK
     Dates: start: 20170320
  13. SIMVASTATIN. [Concomitant]
     Active Substance: SIMVASTATIN
     Dosage: 20 MG, UNK
  14. K TAB [Concomitant]
  15. CLONAZEPAM. [Concomitant]
     Active Substance: CLONAZEPAM
     Dosage: 0.5 MG, UNK
     Dates: start: 20170320
  16. OXYCODONE HYDROCHLORIDE. [Concomitant]
     Active Substance: OXYCODONE HYDROCHLORIDE
     Dosage: 5MG/5ML
     Dates: start: 20170320
  17. NAPROXEN. [Concomitant]
     Active Substance: NAPROXEN
     Dosage: 500 MG, UNK
  18. NEURONTIN [Concomitant]
     Active Substance: GABAPENTIN
     Dosage: 800 MG, UNK
  19. OPSUMIT [Suspect]
     Active Substance: MACITENTAN
     Indication: PULMONARY ARTERIAL HYPERTENSION
     Dosage: 10 MG, QD
     Route: 048
     Dates: start: 20150422
  20. ATROVENT [Concomitant]
     Active Substance: IPRATROPIUM BROMIDE
  21. POTASSIUM CHLORIDE. [Concomitant]
     Active Substance: POTASSIUM CHLORIDE
     Dosage: 10 MEQ, UNK
     Dates: start: 20170320
  22. LEVOCETIRIZINE DIHYDROCHLORIDE. [Concomitant]
     Active Substance: LEVOCETIRIZINE DIHYDROCHLORIDE
     Dosage: 5 MG, UNK
     Dates: start: 20170320
  23. METOPROLOL TARTRATE. [Concomitant]
     Active Substance: METOPROLOL TARTRATE
     Dosage: 25 MG, UNK
     Dates: start: 20170320
  24. TYLENOL [Concomitant]
     Active Substance: ACETAMINOPHEN
     Dosage: 650 MG, UNK
     Dates: start: 20170320
  25. BUMETANIDE. [Concomitant]
     Active Substance: BUMETANIDE
  26. FISH OIL [Concomitant]
     Active Substance: FISH OIL
  27. NASONEX [Concomitant]
     Active Substance: MOMETASONE FUROATE
     Dosage: UNK
     Dates: start: 20170320
  28. BROVANA [Concomitant]
     Active Substance: ARFORMOTEROL TARTRATE
     Dosage: 15 MCG, UNK
     Dates: start: 20170320
  29. BENZONATATE. [Concomitant]
     Active Substance: BENZONATATE
     Dosage: 100 MG, UNK
     Dates: start: 20170320
  30. ATORVASTATIN CALCIUM. [Concomitant]
     Active Substance: ATORVASTATIN CALCIUM
     Dosage: 10 MG, UNK
     Dates: start: 20170320
  31. POTASSIUM GLUCONATE [Concomitant]
     Active Substance: POTASSIUM GLUCONATE
     Dosage: 2 MEQ, UNK
  32. ALBUTEROL. [Concomitant]
     Active Substance: ALBUTEROL
  33. GABAPENTIN. [Concomitant]
     Active Substance: GABAPENTIN
  34. AMLODIPINE BESYLATE. [Concomitant]
     Active Substance: AMLODIPINE BESYLATE
     Dosage: 2.5 MG, UNK
     Dates: start: 20170331
  35. CYCLOBENZAPRINE. [Concomitant]
     Active Substance: CYCLOBENZAPRINE
     Dosage: 10 MG, UNK
  36. METOPROLOL. [Concomitant]
     Active Substance: METOPROLOL
  37. LIPITOR [Concomitant]
     Active Substance: ATORVASTATIN CALCIUM
  38. OMEPRAZOLE. [Concomitant]
     Active Substance: OMEPRAZOLE
     Dosage: 40 MG, UNK
     Dates: start: 20170320
  39. GLUCOSAMINE [Concomitant]
     Active Substance: GLUCOSAMINE
  40. SPIRONOLACTONE. [Concomitant]
     Active Substance: SPIRONOLACTONE
     Dosage: 50 MG, UNK
     Dates: start: 20170320
  41. METOLAZONE. [Concomitant]
     Active Substance: METOLAZONE
     Dosage: 5 MG, UNK
     Dates: start: 20170320
  42. BUDESONIDE. [Concomitant]
     Active Substance: BUDESONIDE
     Dosage: UNK
     Dates: start: 20170320
  43. SSD [Concomitant]
     Active Substance: SILVER SULFADIAZINE
     Dosage: UNK
     Dates: start: 20170331
  44. TEMAZEPAM. [Concomitant]
     Active Substance: TEMAZEPAM
     Dosage: 15 MG, UNK
     Dates: start: 20170331

REACTIONS (10)
  - Sinusitis [Unknown]
  - Memory impairment [Unknown]
  - Drug dose omission [Unknown]
  - Frequent bowel movements [Not Recovered/Not Resolved]
  - Pruritus [Not Recovered/Not Resolved]
  - Nasal congestion [Unknown]
  - Pollakiuria [Not Recovered/Not Resolved]
  - Vaccination complication [Unknown]
  - Depressed mood [Unknown]
  - Decreased interest [Unknown]

NARRATIVE: CASE EVENT DATE: 20151019
